FAERS Safety Report 8038124-2 (Version None)
Quarter: 2012Q1

REPORT INFORMATION
  Report Type: 
  Country: None (occurrence: None)
  Receive Date: 20120111
  Receipt Date: 20111208
  Transmission Date: 20120608
  Serious: No
  Sender: FDA-Public Use
  Company Number: US-AMGEN-USASP2011060281

PATIENT
  Sex: Female

DRUGS (1)
  1. ENBREL [Suspect]
     Indication: PSORIASIS
     Dosage: 50 MG, QWK
     Dates: start: 20110801, end: 20110930

REACTIONS (7)
  - INJECTION SITE REACTION [None]
  - CREPITATIONS [None]
  - INJECTION SITE MASS [None]
  - PAIN IN EXTREMITY [None]
  - RASH [None]
  - PSORIASIS [None]
  - INJECTION SITE URTICARIA [None]
